APPROVED DRUG PRODUCT: DELATESTRYL
Active Ingredient: TESTOSTERONE ENANTHATE
Strength: 200MG/ML **Federal Register determination that product was not discontinued or withdrawn for safety or effectiveness reasons**
Dosage Form/Route: INJECTABLE;INJECTION
Application: N009165 | Product #003
Applicant: ENDO PHARMACEUTICALS INC
Approved: Approved Prior to Jan 1, 1982 | RLD: Yes | RS: No | Type: DISCN